FAERS Safety Report 16820255 (Version 1)
Quarter: 2019Q3

REPORT INFORMATION
  Report Type: Other
  Country: AT (occurrence: AT)
  Receive Date: 20190918
  Receipt Date: 20190918
  Transmission Date: 20191005
  Serious: Yes (Hospitalization)
  Sender: FDA-Public Use
  Company Number: AT-CELLTRION INC.-2019AT019469

PATIENT

DRUGS (19)
  1. PARKEMED [Concomitant]
     Active Substance: MEFENAMIC ACID
     Indication: OSTEONECROSIS OF JAW
     Dosage: UNK
     Route: 065
     Dates: start: 20190315, end: 20190408
  2. PERTUZUMAB. [Suspect]
     Active Substance: PERTUZUMAB
     Indication: BREAST CANCER
     Dosage: 840 MG, EVERY 3 WEEKS (DOSAGE TEXT: MOST RECENT DOSE PRIOR TO THE EVENT: 31/AUG/2018)
     Route: 042
     Dates: start: 20180810
  3. AMLODIPINE [Concomitant]
     Active Substance: AMLODIPINE BESYLATE
     Indication: HYPERTENSION
     Dosage: UNK
     Route: 065
     Dates: start: 20180810
  4. ENTEROBENE [Concomitant]
     Indication: DIARRHOEA
     Dosage: UNK
     Route: 065
     Dates: start: 20181127
  5. VITAMINS WITH MINERALS [Concomitant]
     Active Substance: MINERALS\VITAMINS
     Dosage: UNK
     Route: 065
     Dates: start: 20180817
  6. PARKEMED [Concomitant]
     Active Substance: MEFENAMIC ACID
     Indication: ARTHRALGIA
     Dosage: UNK
     Route: 065
     Dates: start: 20180914
  7. ZOFRAN [Concomitant]
     Active Substance: ONDANSETRON HYDROCHLORIDE
     Dosage: UNK
     Route: 065
     Dates: start: 20180907
  8. PANTOLOC [Concomitant]
     Active Substance: PANTOPRAZOLE SODIUM
     Indication: ABDOMINAL PAIN UPPER
     Dosage: UNK
     Route: 065
     Dates: start: 20181109
  9. NOVALGIN (METAMIZOLE SODIUM) [Concomitant]
     Active Substance: METAMIZOLE SODIUM
     Dosage: UNK
     Route: 065
     Dates: start: 20181126
  10. TRASTUZUMAB (UNKNOWN) [Suspect]
     Active Substance: TRASTUZUMAB
     Indication: BREAST CANCER
     Dosage: 384 MG, EVERY 3 WEEKS (DOSAGE TEXT:MOST RECENT DOSE PRIOR TO THE EVENT: 09/NOV/2018)
     Route: 041
     Dates: start: 20180810, end: 20180810
  11. ABRAXANE [Suspect]
     Active Substance: PACLITAXEL
     Indication: BREAST CANCER
     Dosage: 142.11 MG, 1/WEEK (MOST RECENT DOSE PRIOR TO THE EVENT: 19/OCT/2018)
     Route: 042
     Dates: start: 20180928
  12. CAPHOSOL [Concomitant]
     Active Substance: CALCIUM CHLORIDE\SODIUM CHLORIDE\SODIUM PHOSPHATE, DIBASIC, ANHYDROUS\SODIUM PHOSPHATE, MONOBASIC, ANHYDROUS
     Indication: MUCOSAL INFLAMMATION
     Dosage: UNK
     Route: 065
     Dates: start: 20180921
  13. FEMARA [Suspect]
     Active Substance: LETROZOLE
     Indication: BREAST CANCER
     Dosage: 2.5 MG, QD MOST RECENT DOSE ON 13/JUN/2019
     Route: 048
     Dates: start: 20181029
  14. TEMESTA [LORAZEPAM] [Concomitant]
     Active Substance: LORAZEPAM
     Route: 065
  15. ANTIFLAT [Concomitant]
     Dosage: UNK
     Route: 065
     Dates: start: 20181126
  16. TRITTICO [Concomitant]
     Active Substance: TRAZODONE HYDROCHLORIDE
     Route: 065
  17. XGEVA [Concomitant]
     Active Substance: DENOSUMAB
     Dosage: UNK
     Route: 065
     Dates: start: 20180817, end: 20190225
  18. PARKEMED [Concomitant]
     Active Substance: MEFENAMIC ACID
     Dosage: UNK
     Route: 065
  19. CIPROXIN [Concomitant]
     Active Substance: CIPROFLOXACIN
     Indication: GASTROENTERITIS RADIATION
     Dosage: UNK
     Route: 065
     Dates: start: 20181118

REACTIONS (2)
  - Implant site pain [Not Recovered/Not Resolved]
  - Osteonecrosis of jaw [Not Recovered/Not Resolved]

NARRATIVE: CASE EVENT DATE: 20190225
